FAERS Safety Report 13924416 (Version 1)
Quarter: 2017Q3

REPORT INFORMATION
  Report Type: Report from Study
  Country: MX (occurrence: MX)
  Receive Date: 20170831
  Receipt Date: 20170831
  Transmission Date: 20171127
  Serious: Yes (Other)
  Sender: FDA-Public Use
  Company Number: PHHY2017MX105296

PATIENT
  Age: 63 Year
  Sex: Male

DRUGS (1)
  1. CO-DIOVAN [Suspect]
     Active Substance: HYDROCHLOROTHIAZIDE\VALSARTAN
     Indication: HYPERTENSION
     Dosage: 0.5 DF (VALSARTAN 160 MG, HYDROCHLOROTHIAZIDE 12.5 MG), QOD
     Route: 048
     Dates: start: 200302

REACTIONS (12)
  - Drug prescribing error [Not Recovered/Not Resolved]
  - Fall [Recovered/Resolved]
  - Post procedural complication [Unknown]
  - Musculoskeletal pain [Not Recovered/Not Resolved]
  - Abdominal pain upper [Recovered/Resolved]
  - Loss of consciousness [Unknown]
  - Dizziness [Not Recovered/Not Resolved]
  - Joint injury [Not Recovered/Not Resolved]
  - Inappropriate schedule of drug administration [Not Recovered/Not Resolved]
  - Pain in extremity [Not Recovered/Not Resolved]
  - Diverticulum intestinal [Recovered/Resolved]
  - Wrong technique in product usage process [Not Recovered/Not Resolved]

NARRATIVE: CASE EVENT DATE: 200302
